FAERS Safety Report 19905835 (Version 2)
Quarter: 2021Q4

REPORT INFORMATION
  Report Type: Spontaneous
  Country: CO (occurrence: CO)
  Receive Date: 20210930
  Receipt Date: 20211121
  Transmission Date: 20220303
  Serious: Yes (Death, Life-Threatening, Other)
  Sender: FDA-Public Use
  Company Number: CO-AMGEN-COLSP2021146322

PATIENT
  Age: 15 Year
  Sex: Male
  Weight: 32 kg

DRUGS (32)
  1. BLINCYTO [Suspect]
     Active Substance: BLINATUMOMAB
     Indication: B precursor type acute leukaemia
     Dosage: 38.5 MICROGRAM, QD
     Route: 042
     Dates: start: 20210820
  2. ONDANSETRON [Concomitant]
     Active Substance: ONDANSETRON
     Dosage: 8 MG/4 ML, QD
     Route: 042
  3. ONDANSETRON [Concomitant]
     Active Substance: ONDANSETRON
     Dosage: 8 MG/4 ML, Q8H
     Route: 042
  4. SODIUM BICARBONATE [Concomitant]
     Active Substance: SODIUM BICARBONATE
     Dosage: 10 MEQ/10 ML, Q8H
     Route: 058
  5. SODIUM CHLORIDE [Concomitant]
     Active Substance: SODIUM CHLORIDE
     Dosage: 0.9 PERCENT, Q12H
     Route: 042
  6. SODIUM CHLORIDE [Concomitant]
     Active Substance: SODIUM CHLORIDE
     Dosage: 0.9 PERCENT, QD
     Route: 042
  7. DEXAMETHASONE PHOSPHATE [Concomitant]
     Active Substance: DEXAMETHASONE PHOSPHATE
     Dosage: 4 MILLIGRAM PER MILLILITRE, QD
     Route: 042
  8. DEXAMETHASONE PHOSPHATE [Concomitant]
     Active Substance: DEXAMETHASONE PHOSPHATE
     Dosage: 4 MILLIGRAM PER MILLILITRE, Q8H
     Route: 042
  9. STERILE WATER [Concomitant]
     Active Substance: WATER
     Dosage: 500 MILLILITER
     Route: 042
  10. CIPROFLOXACIN [Concomitant]
     Active Substance: CIPROFLOXACIN
     Dosage: UNK
  11. CLINDAMYCIN [Concomitant]
     Active Substance: CLINDAMYCIN
     Dosage: UNK
  12. CHLORAMPHENICOL [Concomitant]
     Active Substance: CHLORAMPHENICOL
     Dosage: UNK
  13. DAPTOMYCIN [Concomitant]
     Active Substance: DAPTOMYCIN
     Dosage: UNK
  14. ERYTHROMYCIN [Concomitant]
     Active Substance: ERYTHROMYCIN
     Dosage: UNK
  15. GENTAMICIN [Concomitant]
     Active Substance: GENTAMICIN
  16. LINEZOLID [Concomitant]
     Active Substance: LINEZOLID
     Dosage: UNK
  17. MINOCYCLINE [Concomitant]
     Active Substance: MINOCYCLINE HYDROCHLORIDE
     Dosage: UNK
  18. OXACILLIN [Concomitant]
     Active Substance: OXACILLIN SODIUM
     Dosage: UNK
  19. PENICILLIN G [Concomitant]
     Active Substance: PENICILLIN G
     Dosage: UNK
  20. RIFAMPIN [Concomitant]
     Active Substance: RIFAMPIN
     Dosage: UNK
  21. TEICOPLANIN [Concomitant]
     Active Substance: TEICOPLANIN
     Dosage: UNK
  22. SULFAMETHOXAZOLE\TRIMETHOPRIM [Concomitant]
     Active Substance: SULFAMETHOXAZOLE\TRIMETHOPRIM
     Dosage: UNK
  23. VANCOMYCIN [Concomitant]
     Active Substance: VANCOMYCIN
  24. RINGER LACTATE [CALCIUM CHLORIDE DIHYDRATE;MAGNESIUM CHLORIDE;POTASSIU [Concomitant]
     Dosage: 500 MILLILITER, Q6H
     Route: 042
  25. PIPERACILLIN AND TAZOBACTAM [Concomitant]
     Active Substance: PIPERACILLIN SODIUM\TAZOBACTAM SODIUM
     Dosage: 4+0.5 G
     Route: 042
  26. DIPYRONE [Concomitant]
     Active Substance: DIPYRONE
     Dosage: 1G/2ML
     Route: 042
  27. ACETAMINOPHEN [Concomitant]
     Active Substance: ACETAMINOPHEN
     Dosage: 500 MILLIGRAM, Q8H
     Route: 048
  28. CHLORPHENIRAMINE MALEATE [Concomitant]
     Active Substance: CHLORPHENIRAMINE MALEATE
     Dosage: 2 MG/5 ML
     Route: 048
  29. IPRATROPIUM BROMIDE [Concomitant]
     Active Substance: IPRATROPIUM BROMIDE
     Dosage: 20 MICROGRAM, Q6H
  30. MEROPENEM [Concomitant]
     Active Substance: MEROPENEM
     Dosage: UNK
  31. NORFLOXACIN [Concomitant]
     Active Substance: NORFLOXACIN
     Dosage: UNK
  32. METOCLOPRAMIDE HYDROCHLORIDE [Concomitant]
     Active Substance: METOCLOPRAMIDE HYDROCHLORIDE
     Dosage: 10MG/2ML
     Route: 042

REACTIONS (4)
  - Chronic obstructive pulmonary disease [Unknown]
  - Pulmonary sepsis [Fatal]
  - Pneumonia viral [Unknown]
  - Hypomagnesaemia [Unknown]

NARRATIVE: CASE EVENT DATE: 20210824
